FAERS Safety Report 16134565 (Version 1)
Quarter: 2019Q1

REPORT INFORMATION
  Report Type: Spontaneous
  Country: FR (occurrence: DE)
  Receive Date: 20190329
  Receipt Date: 20190329
  Transmission Date: 20190418
  Serious: Yes (Hospitalization, Other)
  Sender: FDA-Public Use
  Company Number: FR-MYLANLABS-07P-062-0371407-00

PATIENT
  Age: 52 Year
  Sex: Female

DRUGS (13)
  1. LEVETIRACETAM. [Interacting]
     Active Substance: LEVETIRACETAM
     Indication: PARTIAL SEIZURES
     Dosage: 4000MILLIGRAM
  2. RISPERIDONE. [Concomitant]
     Active Substance: RISPERIDONE
     Dosage: 6MILLIGRAMQD
  3. LAMOTRIGINE. [Interacting]
     Active Substance: LAMOTRIGINE
     Indication: EPILEPSY
     Dosage: 700MILLIGRAMQD
     Route: 065
  4. RISPERIDONE. [Concomitant]
     Active Substance: RISPERIDONE
     Indication: PSYCHOTIC DISORDER
     Dosage: 2MILLIGRAMQD
     Route: 065
  5. VALPROIC ACID. [Suspect]
     Active Substance: VALPROIC ACID
     Indication: SEIZURE
     Dosage: 600MILLIGRAMQD
     Route: 065
  6. VALPROIC ACID. [Interacting]
     Active Substance: VALPROIC ACID
     Indication: PARTIAL SEIZURES
  7. LAMOTRIGINE. [Interacting]
     Active Substance: LAMOTRIGINE
     Dosage: 150MILLIGRAMQD
  8. OXCARBAZEPINE. [Concomitant]
     Active Substance: OXCARBAZEPINE
     Indication: EPILEPSY
  9. RISPERIDONE. [Concomitant]
     Active Substance: RISPERIDONE
     Dosage: 4MILLIGRAM
  10. LAMOTRIGINE. [Interacting]
     Active Substance: LAMOTRIGINE
     Dosage: 450 MG MILLIGRAM(S) EVERY DAY 450-700 MG/DAY
     Route: 048
  11. RISPERIDONE. [Concomitant]
     Active Substance: RISPERIDONE
     Dosage: 0.5 MILLIGRAM, QD
  12. LORAZEPAM. [Concomitant]
     Active Substance: LORAZEPAM
     Dosage: 3MILLIGRAMQD
  13. LORAZEPAM. [Concomitant]
     Active Substance: LORAZEPAM
     Dosage: 1.5MILLIGRAM

REACTIONS (11)
  - Psychotic disorder [Recovered/Resolved]
  - Seizure [Unknown]
  - Attention-seeking behaviour [Recovered/Resolved]
  - Hallucination, auditory [Recovered/Resolved]
  - Drug interaction [Recovered/Resolved]
  - Drug level increased [Recovering/Resolving]
  - Delusion [Recovered/Resolved]
  - Agitation [Recovered/Resolved]
  - Sleep disorder [Unknown]
  - Aggression [Recovered/Resolved]
  - Abnormal behaviour [Recovered/Resolved]
